FAERS Safety Report 9994952 (Version 1)
Quarter: 2014Q1

REPORT INFORMATION
  Report Type: Spontaneous
  Country: US (occurrence: None)
  Receive Date: 20140307
  Receipt Date: 20140307
  Transmission Date: 20141002
  Serious: Yes (Other)
  Sender: FDA-Public Use
  Company Number: None

PATIENT
  Age: 46 Year
  Sex: Female
  Weight: 54.43 kg

DRUGS (3)
  1. LEVOFLOXACIN [Suspect]
     Indication: INFECTION
     Dosage: 5-6 PM 1 TAB BY MOUTH
     Route: 048
     Dates: start: 20140107, end: 20140113
  2. MULTI VITAMIN BY NATURE MADE [Concomitant]
  3. CA+MG,ZINC W/D3 TAB 2-3 WKS [Concomitant]

REACTIONS (13)
  - Lymphadenopathy [None]
  - Rash [None]
  - Rash [None]
  - Muscle spasms [None]
  - Muscle tightness [None]
  - Abasia [None]
  - Thrombosis [None]
  - Tendon disorder [None]
  - Muscle disorder [None]
  - Pruritus [None]
  - Fatigue [None]
  - Myalgia [None]
  - Paraesthesia [None]
